FAERS Safety Report 18399125 (Version 1)
Quarter: 2020Q4

REPORT INFORMATION
  Report Type: Spontaneous
  Country: US (occurrence: US)
  Receive Date: 20201010
  Receipt Date: 20201010
  Transmission Date: 20210114
  Serious: Yes (Death, Life-Threatening, Hospitalization, Disabling)
  Sender: FDA-Public Use
  Company Number: None

PATIENT
  Age: 45 Year
  Sex: Male

DRUGS (1)
  1. SUPER RUSH (AMYL NITRITE) [Suspect]
     Active Substance: AMYL NITRITE
     Indication: LIBIDO INCREASED
     Dosage: ?          OTHER FREQUENCY:ONCE;?
     Route: 045
     Dates: start: 20200314, end: 20200314

REACTIONS (4)
  - Brain death [None]
  - Tachycardia [None]
  - Unresponsive to stimuli [None]
  - Cardiac arrest [None]

NARRATIVE: CASE EVENT DATE: 20200314
